FAERS Safety Report 7174832-3 (Version None)
Quarter: 2010Q4

REPORT INFORMATION
  Report Type: 
  Country: None (occurrence: None)
  Receive Date: 20101219
  Receipt Date: 20100611
  Transmission Date: 20110411
  Serious: No
  Sender: FDA-Public Use
  Company Number: US-AMGEN-KDL394643

PATIENT

DRUGS (5)
  1. ENBREL [Suspect]
     Indication: RHEUMATOID ARTHRITIS
     Dosage: 50 MG, QWK
  2. METHOTREXATE [Concomitant]
     Dosage: UNK UNK, UNK
  3. HYDROCODONE [Concomitant]
     Dosage: UNK UNK, UNK
  4. HYDROXYCHLOROQUINE SULFATE [Concomitant]
     Dosage: UNK UNK, UNK
  5. SUCRALFATE [Concomitant]
     Dosage: UNK UNK, UNK

REACTIONS (1)
  - ONYCHOMADESIS [None]
